FAERS Safety Report 10314497 (Version 1)
Quarter: 2014Q3

REPORT INFORMATION
  Report Type: Spontaneous
  Country: JP (occurrence: JP)
  Receive Date: 20140718
  Receipt Date: 20140718
  Transmission Date: 20150326
  Serious: Yes (Other)
  Sender: FDA-Public Use
  Company Number: JP-PFIZER INC-2014200549

PATIENT
  Age: 85 Year
  Sex: Female

DRUGS (2)
  1. DUROTEP MT PATCH [Concomitant]
     Active Substance: FENTANYL
     Route: 062
  2. LYRICA [Suspect]
     Active Substance: PREGABALIN
     Indication: HYPOAESTHESIA
     Dosage: 25 MG, DAILY
     Route: 048

REACTIONS (4)
  - Fall [Unknown]
  - Hip fracture [Unknown]
  - Contusion [Unknown]
  - Dizziness [Unknown]
